FAERS Safety Report 11049330 (Version 1)
Quarter: 2015Q2

REPORT INFORMATION
  Report Type: Spontaneous
  Country: US (occurrence: US)
  Receive Date: 20150420
  Receipt Date: 20150420
  Transmission Date: 20150821
  Serious: Yes (Other)
  Sender: FDA-Public Use
  Company Number: US-MYLANLABS-2015M1012940

PATIENT

DRUGS (2)
  1. CISPLATIN. [Suspect]
     Active Substance: CISPLATIN
     Indication: OESOPHAGEAL ADENOCARCINOMA
     Dosage: TWO CYCLES; THEN CONCURRENT CHEMOTHERAPY AND RADIATION
     Route: 065
  2. FLUOROURACIL. [Suspect]
     Active Substance: FLUOROURACIL
     Indication: OESOPHAGEAL ADENOCARCINOMA
     Dosage: TWO CYCLES; THEN CONCURRENT CHEMOTHERAPY AND RADIATION
     Route: 065

REACTIONS (4)
  - Anaemia [Unknown]
  - Malnutrition [Unknown]
  - Aphasia [Unknown]
  - Dehydration [Unknown]
